FAERS Safety Report 9788232 (Version 1)
Quarter: 2013Q4

REPORT INFORMATION
  Report Type: Spontaneous
  Country: JP (occurrence: JP)
  Receive Date: 20131230
  Receipt Date: 20131230
  Transmission Date: 20140711
  Serious: Yes (Hospitalization)
  Sender: FDA-Public Use
  Company Number: JP-BAYER-2013-156162

PATIENT
  Age: 79 Year
  Sex: Male

DRUGS (2)
  1. BAYASPIRIN [Suspect]
     Dosage: UNK
     Route: 048
  2. CELECOXIB [Interacting]
     Indication: BACK PAIN
     Dosage: UNK
     Route: 048
     Dates: start: 2010, end: 201009

REACTIONS (2)
  - Drug reaction with eosinophilia and systemic symptoms [None]
  - Drug interaction [None]
